FAERS Safety Report 5011642-7 (Version None)
Quarter: 2006Q2

REPORT INFORMATION
  Report Type: 
  Country: None (occurrence: None)
  Receive Date: 20060526
  Receipt Date: 20060518
  Transmission Date: 20061013
  Serious: Yes (Other)
  Sender: FDA-Public Use
  Company Number: US-JNJFOC-20060504334

PATIENT
  Sex: Female
  Weight: 53.52 kg

DRUGS (6)
  1. REMICADE [Suspect]
     Indication: RHEUMATOID ARTHRITIS
     Route: 042
  2. METHOTREXATE [Concomitant]
     Dosage: 1 DOSE= 1 TABLET
  3. UNSPECIFIED PAIN MEDICATIONS [Concomitant]
  4. DARVOCET [Concomitant]
  5. DARVOCET [Concomitant]
     Indication: PAIN
  6. UNSPECIFIED HYPERTENSION MEDICATION [Concomitant]
     Indication: HYPERTENSION

REACTIONS (7)
  - ANOREXIA [None]
  - ARTHRALGIA [None]
  - BONE PAIN [None]
  - DRUG INEFFECTIVE [None]
  - LYMPHADENOPATHY [None]
  - PAIN [None]
  - WEIGHT DECREASED [None]
